FAERS Safety Report 17887140 (Version 4)
Quarter: 2025Q4

REPORT INFORMATION
  Report Type: Spontaneous
  Country: JP (occurrence: JP)
  Receive Date: 20200611
  Receipt Date: 20251113
  Transmission Date: 20260119
  Serious: Yes (Other)
  Sender: LUNDBECK
  Company Number: JP-SANOFI-2019SA188848

PATIENT
  Age: 3 Year
  Sex: Male

DRUGS (14)
  1. SABRIL [Suspect]
     Active Substance: VIGABATRIN
     Indication: Infantile spasms
     Dosage: 125 MG, BID
     Route: 048
     Dates: start: 20181010, end: 20181017
  2. SABRIL [Suspect]
     Active Substance: VIGABATRIN
     Dosage: 500 MG, BID
     Route: 048
     Dates: start: 20180926, end: 20181002
  3. SABRIL [Suspect]
     Active Substance: VIGABATRIN
     Dosage: 250 MG, BID
     Route: 048
     Dates: start: 20181003, end: 20181009
  4. SABRIL [Suspect]
     Active Substance: VIGABATRIN
     Dosage: 250 MG, BID
     Route: 048
     Dates: start: 20170914, end: 20170925
  5. SABRIL [Suspect]
     Active Substance: VIGABATRIN
     Dosage: 375 MG, BID
     Route: 048
     Dates: start: 20170926, end: 20171009
  6. SABRIL [Suspect]
     Active Substance: VIGABATRIN
     Dosage: 500 MG, BID
     Route: 048
     Dates: start: 20171010, end: 20171026
  7. SABRIL [Suspect]
     Active Substance: VIGABATRIN
     Dosage: 625 MG, BID
     Route: 048
     Dates: start: 20171027, end: 20171205
  8. SABRIL [Suspect]
     Active Substance: VIGABATRIN
     Dosage: 750 MG, BID
     Route: 048
     Dates: start: 20171206, end: 20180410
  9. SABRIL [Suspect]
     Active Substance: VIGABATRIN
     Dosage: 900 MG, BID
     Route: 048
     Dates: start: 20180411, end: 20180731
  10. SABRIL [Suspect]
     Active Substance: VIGABATRIN
     Dosage: 1000 MG, BID
     Route: 048
     Dates: start: 20180801, end: 20180918
  11. SABRIL [Suspect]
     Active Substance: VIGABATRIN
     Dosage: 750 MG, BID
     Route: 048
     Dates: start: 20180919, end: 20180925
  12. MYSTAN [Concomitant]
     Active Substance: CLOBAZAM
     Indication: Infantile spasms
     Dosage: DAILY DOSE: 4 MG
     Route: 048
  13. ZONISAMIDE [Concomitant]
     Active Substance: ZONISAMIDE
     Indication: Infantile spasms
     Dosage: DAILY DOSE: 100 MG
     Route: 048
  14. VALPROATE SODIUM [Concomitant]
     Active Substance: VALPROATE SODIUM
     Indication: Infantile spasms
     Dosage: DAILY DOSE: 250 MG
     Route: 048

REACTIONS (2)
  - Retinogram abnormal [Unknown]
  - Therapeutic product effect incomplete [Unknown]

NARRATIVE: CASE EVENT DATE: 20190305
